FAERS Safety Report 8563935-4 (Version None)
Quarter: 2012Q3

REPORT INFORMATION
  Report Type: 
  Country: None (occurrence: None)
  Receive Date: 20120723
  Receipt Date: 20120703
  Transmission Date: 20120928
  Serious: Yes (Hospitalization)
  Sender: FDA-Public Use
  Company Number: 2012PROUSA01615

PATIENT
  Age: 88 Year
  Sex: Male
  Weight: 87.5 kg

DRUGS (10)
  1. TRAVATAN [Concomitant]
  2. ASPIRIN [Concomitant]
  3. PROVENGE [Suspect]
     Indication: PROSTATE CANCER METASTATIC
     Dosage: 250 ML, SINGLE, INTRAVENOUS
     Route: 042
     Dates: start: 20120628, end: 20120628
  4. FLOMAX [Concomitant]
  5. CASODEX [Concomitant]
  6. SIMVASTATIN [Concomitant]
  7. LASIX [Concomitant]
  8. CALTRATE (CALCIUM CARBONATE, COLECALCIFEROL) [Concomitant]
  9. AMLODIPINE BESYLATE [Concomitant]
  10. CENTRUM SILVER (ASCORBIC ACID, BIOTIN, CALCIUM, CALCIUM PANTOTHENATE, [Concomitant]

REACTIONS (4)
  - TRANSIENT ISCHAEMIC ATTACK [None]
  - LOSS OF CONSCIOUSNESS [None]
  - CARDIAC DISORDER [None]
  - FALL [None]
